FAERS Safety Report 11216936 (Version 1)
Quarter: 2015Q2

REPORT INFORMATION
  Report Type: Spontaneous
  Country: US (occurrence: None)
  Receive Date: 20150623
  Receipt Date: 20150623
  Transmission Date: 20150821
  Serious: No
  Sender: FDA-Public Use
  Company Number: None

PATIENT
  Age: 68 Year

DRUGS (1)
  1. BELVIQ [Suspect]
     Active Substance: LORCASERIN HYDROCHLORIDE
     Indication: WEIGHT DECREASED
     Route: 048

REACTIONS (6)
  - Headache [None]
  - Constipation [None]
  - Fatigue [None]
  - Dizziness [None]
  - Dry mouth [None]
  - Chills [None]

NARRATIVE: CASE EVENT DATE: 20150604
